FAERS Safety Report 6834242-2 (Version None)
Quarter: 2010Q3

REPORT INFORMATION
  Report Type: 
  Country: None (occurrence: None)
  Receive Date: 20100712
  Receipt Date: 20070419
  Transmission Date: 20110219
  Serious: No
  Sender: FDA-Public Use
  Company Number: US-PFIZER INC-2007025764

PATIENT
  Sex: Female
  Weight: 70.31 kg

DRUGS (3)
  1. CHANTIX [Suspect]
     Indication: SMOKING CESSATION THERAPY
     Dates: start: 20070301, end: 20070301
  2. ALLEGRA [Concomitant]
     Indication: ALLERGIC SINUSITIS
  3. NICOTINE [Concomitant]

REACTIONS (7)
  - DRUG INEFFECTIVE [None]
  - FEELING ABNORMAL [None]
  - HEADACHE [None]
  - LETHARGY [None]
  - NAUSEA [None]
  - SINUS DISORDER [None]
  - STRESS [None]
